FAERS Safety Report 5318706-9 (Version None)
Quarter: 2007Q2

REPORT INFORMATION
  Report Type: 
  Country: None (occurrence: None)
  Receive Date: 20070508
  Receipt Date: 20070430
  Transmission Date: 20071010
  Serious: Yes (Other)
  Sender: FDA-Public Use
  Company Number: US-AVENTIS-200712518US

PATIENT
  Age: 26 Year
  Sex: Female
  Weight: 72 kg

DRUGS (3)
  1. CLOMID [Suspect]
     Dosage: DOSE: UNK
     Dates: start: 20061101
  2. METHYLDOPA [Concomitant]
  3. FUROSEMIDE [Concomitant]

REACTIONS (6)
  - BENIGN INTRACRANIAL HYPERTENSION [None]
  - INTRACRANIAL PRESSURE INCREASED [None]
  - NAUSEA [None]
  - RETINAL HAEMORRHAGE [None]
  - TINNITUS [None]
  - VITREOUS FLOATERS [None]
